FAERS Safety Report 8614929-1 (Version None)
Quarter: 2012Q3

REPORT INFORMATION
  Report Type: 
  Country: None (occurrence: None)
  Receive Date: 20120823
  Receipt Date: 20120816
  Transmission Date: 20120928
  Serious: No
  Sender: FDA-Public Use
  Company Number: US-B.I. PHARMACEUTICALS,INC./RIDGEFIELD-2012-BP-19679BP

PATIENT
  Age: 68 Year
  Sex: Female

DRUGS (2)
  1. SPIRIVA [Suspect]
     Indication: CHRONIC OBSTRUCTIVE PULMONARY DISEASE
     Dosage: 18 MCG
     Route: 055
     Dates: start: 20120501, end: 20120601
  2. SPIRIVA [Suspect]
     Dosage: 18 MCG
     Route: 055
     Dates: start: 20120813

REACTIONS (3)
  - DYSPNOEA [None]
  - CAPSULE PHYSICAL ISSUE [None]
  - DRUG INEFFECTIVE [None]
